FAERS Safety Report 23331824 (Version 1)
Quarter: 2023Q4

REPORT INFORMATION
  Report Type: Spontaneous
  Country: None (occurrence: DE)
  Receive Date: 20231222
  Receipt Date: 20231222
  Transmission Date: 20240110
  Serious: Yes (Other)
  Sender: FDA-Public Use
  Company Number: DE-Hill Dermaceuticals, Inc.-2149656

PATIENT
  Sex: Male
  Weight: 77.0 kg

DRUGS (7)
  1. TOLAK [Suspect]
     Active Substance: FLUOROURACIL
     Indication: Skin cancer
     Route: 065
     Dates: start: 20201123, end: 20201211
  2. IVABRADINE [Suspect]
     Active Substance: IVABRADINE
     Dates: start: 202004
  3. ALLOPURINOL [Concomitant]
     Active Substance: ALLOPURINOL
     Dates: start: 200012
  4. CANDESARTAN [Concomitant]
     Active Substance: CANDESARTAN
     Dates: end: 202012
  5. EZETIMIBE [Concomitant]
     Active Substance: EZETIMIBE
     Dates: start: 201912
  6. ASPIRIN [Concomitant]
     Active Substance: ASPIRIN
  7. Torasemide hexal (torasemide) [Concomitant]
     Dates: start: 201912

REACTIONS (5)
  - Angina pectoris [Not Recovered/Not Resolved]
  - Condition aggravated [Not Recovered/Not Resolved]
  - Oral herpes [Not Recovered/Not Resolved]
  - Product use in unapproved indication [None]
  - Off label use [None]

NARRATIVE: CASE EVENT DATE: 20201123
